FAERS Safety Report 6509641-9 (Version None)
Quarter: 2009Q4

REPORT INFORMATION
  Report Type: 
  Country: None (occurrence: None)
  Receive Date: 20091216
  Receipt Date: 20091130
  Transmission Date: 20100525
  Serious: Yes (Death)
  Sender: FDA-Public Use
  Company Number: B0612926A

PATIENT
  Sex: 0

DRUGS (6)
  1. MELPHALAN (FORMULATION UNKNOWN) (GENERIC) (MALPHALAN) [Suspect]
     Indication: B-CELL LYMPHOMA
  2. ETOPOSIDE [Suspect]
     Indication: B-CELL LYMPHOMA
  3. YTTRIUM (FORMULATION UNKNOWN) (YTTRIUM) [Suspect]
     Indication: B-CELL LYMPHOMA
     Dosage: 14.8 MBECQUEREL
  4. IBRITUMOMAB TIUXETAN (FORMULATION UNKNOWN) (IBRITUMOMAB TIUXETAN) [Suspect]
     Indication: B-CELL LYMPHOMA
     Dosage: 14.8 MBECQUEREL
  5. CARMUSTINE [Suspect]
     Indication: B-CELL LYMPHOMA
  6. CYTARABINE [Suspect]
     Indication: B-CELL LYMPHOMA

REACTIONS (2)
  - DRUG TOXICITY [None]
  - VENTRICULAR FIBRILLATION [None]
